FAERS Safety Report 4529588-7 (Version None)
Quarter: 2004Q4

REPORT INFORMATION
  Report Type: 
  Country: None (occurrence: None)
  Receive Date: 20041215
  Receipt Date: 20041215
  Transmission Date: 20050328
  Serious: No
  Sender: FDA-Public Use
  Company Number: None

PATIENT
  Sex: Male
  Weight: 78.0187 kg

DRUGS (1)
  1. METOPROLOL TARTRATE [Suspect]
     Indication: SINUS ARRHYTHMIA
     Dosage: 50 MG BID PO
     Route: 048
     Dates: start: 19950101

REACTIONS (1)
  - PHARMACEUTICAL PRODUCT COMPLAINT [None]
